FAERS Safety Report 8547275-5 (Version None)
Quarter: 2012Q3

REPORT INFORMATION
  Report Type: 
  Country: None (occurrence: None)
  Receive Date: 20120727
  Receipt Date: 20120723
  Transmission Date: 20120928
  Serious: No
  Sender: FDA-Public Use
  Company Number: US-ASTRAZENECA-2012SE51565

PATIENT
  Sex: Male

DRUGS (2)
  1. OTHER MEDICATIONS [Suspect]
     Route: 065
  2. SYMBICORT [Suspect]
     Dosage: UNKNOWN FREQUENCY
     Route: 055

REACTIONS (1)
  - STRESS [None]
